FAERS Safety Report 5033735-0 (Version None)
Quarter: 2006Q2

REPORT INFORMATION
  Report Type: 
  Country: None (occurrence: None)
  Receive Date: 20060623
  Receipt Date: 20060613
  Transmission Date: 20061013
  Serious: Yes (Other)
  Sender: FDA-Public Use
  Company Number: PHBS2006HU08756

PATIENT
  Age: 63 Year
  Sex: Female
  Weight: 56 kg

DRUGS (4)
  1. ZOLEDRONATE [Suspect]
     Indication: METASTASES TO BONE
     Dosage: 4 MG, QMO
     Dates: start: 20030709, end: 20040513
  2. TAXOTERE [Concomitant]
     Route: 065
     Dates: start: 20040224, end: 20040707
  3. XELODA [Concomitant]
     Route: 065
     Dates: start: 20040224, end: 20040707
  4. FARESTON [Concomitant]
     Route: 065
     Dates: start: 20030601, end: 20040201

REACTIONS (2)
  - MANDIBULECTOMY [None]
  - OSTEONECROSIS [None]
